FAERS Safety Report 19765231 (Version 1)
Quarter: 2021Q3

REPORT INFORMATION
  Report Type: Spontaneous
  Country: US (occurrence: US)
  Receive Date: 20210831
  Receipt Date: 20210831
  Transmission Date: 20211014
  Serious: No
  Sender: FDA-Public Use
  Company Number: US-STRIDES ARCOLAB LIMITED-2021SP007116

PATIENT
  Age: 59 Year
  Sex: Male

DRUGS (2)
  1. TRIAMCINOLONE ACETONIDE. [Suspect]
     Active Substance: TRIAMCINOLONE ACETONIDE
     Indication: PRURITUS
     Dosage: UNK, CREAM
     Route: 065
  2. BINTRAFUSP ALFA. [Concomitant]
     Active Substance: BINTRAFUSP ALFA
     Indication: PRODUCT USED FOR UNKNOWN INDICATION
     Dosage: 1200 MILLIGRAM, EVERY 2 WEEKS
     Route: 042

REACTIONS (1)
  - Drug ineffective [Unknown]
